FAERS Safety Report 25180619 (Version 3)
Quarter: 2025Q4

REPORT INFORMATION
  Report Type: Spontaneous
  Country: US (occurrence: US)
  Receive Date: 20250409
  Receipt Date: 20251030
  Transmission Date: 20260117
  Serious: Yes (Other)
  Sender: TEVA
  Company Number: US-TEVA-VS-3318231

PATIENT
  Age: 77 Year
  Sex: Male

DRUGS (4)
  1. AUSTEDO [Suspect]
     Active Substance: DEUTETRABENAZINE
     Indication: Tardive dyskinesia
     Route: 048
  2. AUSTEDO [Suspect]
     Active Substance: DEUTETRABENAZINE
     Indication: Tardive dyskinesia
     Dosage: THE DOCTOR INSTRUCTED PATIENT TO TAKE AUSTEDO 6MG, 1 TABLET IN THE MORNING AND TWO TABLETS IN THE...
     Route: 048
     Dates: start: 20250411
  3. AUSTEDO [Suspect]
     Active Substance: DEUTETRABENAZINE
     Indication: Tardive dyskinesia
     Route: 048
  4. AUSTEDO [Suspect]
     Active Substance: DEUTETRABENAZINE
     Indication: Tardive dyskinesia
     Dosage: AUSTEDO 9MG EVERY MORNING; AUSTEDO 12MG IN THE EVENING,
     Route: 048

REACTIONS (3)
  - Tardive dyskinesia [Unknown]
  - Product use issue [Unknown]
  - Off label use [Unknown]
